FAERS Safety Report 6734958-2 (Version None)
Quarter: 2010Q2

REPORT INFORMATION
  Report Type: 
  Country: None (occurrence: None)
  Receive Date: 20100521
  Receipt Date: 20100510
  Transmission Date: 20101027
  Serious: Yes (Hospitalization)
  Sender: FDA-Public Use
  Company Number: FR-PFIZER INC-2009301378

PATIENT
  Age: 42 Year
  Sex: Male

DRUGS (1)
  1. PEGVISOMANT [Suspect]
     Indication: ACROMEGALY
     Dosage: 20 MG, 1X/DAY
     Dates: start: 20080321

REACTIONS (1)
  - EXERESIS [None]
